FAERS Safety Report 9352683 (Version 2)
Quarter: 2013Q3

REPORT INFORMATION
  Report Type: Spontaneous
  Country: US (occurrence: US)
  Receive Date: 20130618
  Receipt Date: 20130706
  Transmission Date: 20140515
  Serious: No
  Sender: FDA-Public Use
  Company Number: US-009507513-1306USA007066

PATIENT
  Age: 6 Year
  Sex: Female
  Weight: 28.12 kg

DRUGS (3)
  1. SINGULAIR [Suspect]
     Indication: ASTHMA
     Dosage: 1 STANDARD PACKAGE BOTTLE OF 21
     Route: 048
     Dates: start: 20120430, end: 20120823
  2. CLARITIN [Concomitant]
  3. QVAR [Concomitant]
     Dosage: 40 MG, UNK

REACTIONS (6)
  - Asthma exercise induced [Unknown]
  - Aggression [Recovered/Resolved]
  - Irritability [Recovered/Resolved]
  - Disturbance in attention [Recovered/Resolved]
  - Abnormal behaviour [Unknown]
  - Mood altered [Unknown]
